FAERS Safety Report 14342402 (Version 1)
Quarter: 2018Q1

REPORT INFORMATION
  Report Type: Spontaneous
  Country: TW (occurrence: TW)
  Receive Date: 20180102
  Receipt Date: 20180102
  Transmission Date: 20180509
  Serious: Yes (Death)
  Sender: FDA-Public Use
  Company Number: TW-KINDOS PHARMACEUTICALS CO., LTD.-2017MHL00004

PATIENT
  Sex: Female

DRUGS (1)
  1. CARBOPLATIN. [Suspect]
     Active Substance: CARBOPLATIN
     Indication: NEOPLASM MALIGNANT
     Dosage: CUMULATIVE DOSE OF APPROXIMATELY 14,000 MG
     Route: 065

REACTIONS (3)
  - Hypersensitivity [Fatal]
  - Respiratory arrest [Fatal]
  - Respiratory failure [Fatal]
